FAERS Safety Report 19622009 (Version 1)
Quarter: 2021Q3

REPORT INFORMATION
  Report Type: Spontaneous
  Country: US (occurrence: US)
  Receive Date: 20210728
  Receipt Date: 20210728
  Transmission Date: 20211014
  Serious: No
  Sender: FDA-Public Use
  Company Number: US-BAUSCH-BL-2021-022058

PATIENT
  Sex: Male

DRUGS (2)
  1. VYZULTA [Suspect]
     Active Substance: LATANOPROSTENE BUNOD
     Indication: GLAUCOMA
     Dosage: EVENING
     Route: 047
     Dates: start: 20210606
  2. VYZULTA [Suspect]
     Active Substance: LATANOPROSTENE BUNOD
     Dosage: MORNING AND EVENING
     Route: 047
     Dates: start: 20210607, end: 20210608

REACTIONS (2)
  - Vitreous floaters [Not Recovered/Not Resolved]
  - Periorbital pain [Unknown]

NARRATIVE: CASE EVENT DATE: 20210607
